FAERS Safety Report 20417539 (Version 1)
Quarter: 2022Q1

REPORT INFORMATION
  Report Type: Spontaneous
  Country: JP (occurrence: JP)
  Receive Date: 20220202
  Receipt Date: 20220202
  Transmission Date: 20220423
  Serious: Yes (Hospitalization, Other)
  Sender: FDA-Public Use
  Company Number: JP-ONO-2021JP013699

PATIENT
  Age: 68 Year
  Sex: Female
  Weight: 57 kg

DRUGS (9)
  1. SITAGLIPTIN [Suspect]
     Active Substance: SITAGLIPTIN
     Indication: Type 2 diabetes mellitus
     Dosage: 50 MG, EVERYDAY
     Route: 048
     Dates: start: 20200522
  2. TIRABRUTINIB HYDROCHLORIDE [Suspect]
     Active Substance: TIRABRUTINIB HYDROCHLORIDE
     Indication: Central nervous system lymphoma
     Dosage: 480 MG, EVERYDAY
     Route: 048
     Dates: start: 20201224, end: 20210101
  3. TIRABRUTINIB HYDROCHLORIDE [Suspect]
     Active Substance: TIRABRUTINIB HYDROCHLORIDE
     Dosage: UNK UNK, EVERYDAY
     Route: 048
  4. TIRABRUTINIB HYDROCHLORIDE [Suspect]
     Active Substance: TIRABRUTINIB HYDROCHLORIDE
     Dosage: 160 MG, EVERYDAY
     Route: 048
     Dates: start: 20210125, end: 20210128
  5. TIRABRUTINIB HYDROCHLORIDE [Suspect]
     Active Substance: TIRABRUTINIB HYDROCHLORIDE
     Dosage: 320 MG, EVERYDAY
     Route: 048
     Dates: start: 20210129, end: 20210222
  6. LEVETIRACETAM [Concomitant]
     Active Substance: LEVETIRACETAM
     Indication: Central nervous system lymphoma
     Dosage: 500 MG, Q12H
     Route: 048
     Dates: start: 20200522
  7. METHYLCOBALAMIN [Concomitant]
     Active Substance: METHYLCOBALAMIN
     Indication: Central nervous system lymphoma
     Dosage: 500 MG, Q8H
     Route: 048
     Dates: start: 20200522
  8. SODIUM CHLORIDE [Concomitant]
     Active Substance: SODIUM CHLORIDE
     Indication: Central nervous system lymphoma
     Dosage: 2 G, Q8H
     Route: 048
     Dates: start: 20200522
  9. EDOXABAN TOSYLATE [Concomitant]
     Active Substance: EDOXABAN TOSYLATE
     Indication: Prophylaxis
     Dosage: 30 MG, EVERYDAY
     Route: 048
     Dates: start: 20201119

REACTIONS (2)
  - Diarrhoea [Recovered/Resolved]
  - Neutrophil count decreased [Recovered/Resolved]

NARRATIVE: CASE EVENT DATE: 20201228
